FAERS Safety Report 8908442 (Version 1)
Quarter: 2012Q4

REPORT INFORMATION
  Report Type: 
  Country: SG (occurrence: SG)
  Receive Date: 20121114
  Receipt Date: 20121114
  Transmission Date: 20130627
  Serious: Yes (Other)
  Sender: FDA-Public Use
  Company Number: SG-PFIZER INC-2012281355

PATIENT
  Age: 25 Year
  Sex: Female

DRUGS (7)
  1. DEXAMETHASONE SODIUM PHOSPHATE [Suspect]
     Indication: ACUTE LYMPHOBLASTIC LEUKEMIA
     Dosage: 10 mg/m2/day from day 1 to day 21
  2. DEXAMETHASONE SODIUM PHOSPHATE [Suspect]
     Dosage: 5 mg/m2/day on days 22-24
  3. DEXAMETHASONE SODIUM PHOSPHATE [Suspect]
     Dosage: 2.5 mg/m2 /day on days 25-27
  4. DEXAMETHASONE SODIUM PHOSPHATE [Suspect]
     Dosage: 1.25 mg/m2 /day on days 28-30
  5. L-ASPARAGINASE [Suspect]
     Indication: ACUTE LYMPHOBLASTIC LEUKEMIA
     Dosage: 10000 units/m 2 given on days 8, 11, 15 and 18
  6. VINCRISTINE [Concomitant]
     Indication: ACUTE LYMPHOBLASTIC LEUKEMIA
     Dosage: 1.5 mg/m2 on days 8, 15, 22 and 29
  7. DOXORUBICIN [Concomitant]
     Indication: ACUTE LYMPHOBLASTIC LEUKEMIA
     Dosage: 30 mg/m2 on day 8, 15, 22 and 29

REACTIONS (1)
  - Hypertriglyceridaemia [Recovered/Resolved]
